FAERS Safety Report 17853548 (Version 1)
Quarter: 2020Q2

REPORT INFORMATION
  Report Type: Spontaneous
  Country: RU (occurrence: RU)
  Receive Date: 20200603
  Receipt Date: 20200603
  Transmission Date: 20200714
  Serious: Yes (Other)
  Sender: FDA-Public Use
  Company Number: RU-ROCHE-2485309

PATIENT
  Sex: Female

DRUGS (1)
  1. ALECENSA [Suspect]
     Active Substance: ALECTINIB HYDROCHLORIDE
     Indication: ADENOCARCINOMA
     Route: 065

REACTIONS (6)
  - Respiratory tract infection viral [Unknown]
  - Blood creatinine increased [Unknown]
  - Chest pain [Unknown]
  - Oliguria [Unknown]
  - Blood creatine phosphokinase increased [Unknown]
  - Body temperature increased [Unknown]
